FAERS Safety Report 10220690 (Version 1)
Quarter: 2014Q2

REPORT INFORMATION
  Report Type: Spontaneous
  Country: US (occurrence: None)
  Receive Date: 20140605
  Receipt Date: 20140605
  Transmission Date: 20141212
  Serious: Yes (Other)
  Sender: FDA-Public Use
  Company Number: None

PATIENT
  Age: 39 Year
  Sex: Female

DRUGS (1)
  1. CLOMIPHENE [Suspect]
     Indication: INFERTILITY
     Route: 048
     Dates: start: 20140506, end: 20140510

REACTIONS (17)
  - Headache [None]
  - Muscle spasms [None]
  - Abdominal distension [None]
  - Abdominal tenderness [None]
  - Tenderness [None]
  - Breast tenderness [None]
  - Nausea [None]
  - Dyspepsia [None]
  - Dyspepsia [None]
  - Depression [None]
  - Mood swings [None]
  - Restlessness [None]
  - Insomnia [None]
  - Dry mouth [None]
  - Mucosal dryness [None]
  - Dysmenorrhoea [None]
  - Menorrhagia [None]
